FAERS Safety Report 16141713 (Version 3)
Quarter: 2019Q3

REPORT INFORMATION
  Report Type: Report from Study
  Country: US (occurrence: US)
  Receive Date: 20190401
  Receipt Date: 20190930
  Transmission Date: 20191004
  Serious: Yes (Other)
  Sender: FDA-Public Use
  Company Number: US-CLOVIS ONCOLOGY-CLO-2019-000300

PATIENT
  Sex: Female

DRUGS (1)
  1. RUBRACA [Suspect]
     Active Substance: RUCAPARIB CAMSYLATE
     Indication: OVARIAN CANCER
     Dosage: 600 MG, BID
     Route: 048
     Dates: start: 20190207

REACTIONS (29)
  - Weight decreased [Not Recovered/Not Resolved]
  - Tracheal mass [Unknown]
  - Dyspepsia [Not Recovered/Not Resolved]
  - Dizziness [Not Recovered/Not Resolved]
  - Product dose omission [Unknown]
  - Dry mouth [Recovering/Resolving]
  - Dry eye [Recovering/Resolving]
  - Abdominal pain [Not Recovered/Not Resolved]
  - Tumour marker increased [Not Recovered/Not Resolved]
  - Hernia [Unknown]
  - Abdominal distension [Not Recovered/Not Resolved]
  - Heart rate irregular [Recovering/Resolving]
  - Dehydration [Unknown]
  - Leukopenia [Recovering/Resolving]
  - Blood sodium decreased [Unknown]
  - Productive cough [Unknown]
  - Pulmonary mass [Unknown]
  - Dysgeusia [Recovered/Resolved]
  - Gingival bleeding [Unknown]
  - Blood pressure increased [Recovering/Resolving]
  - Lip dry [Recovering/Resolving]
  - Cough [Not Recovered/Not Resolved]
  - Headache [Recovering/Resolving]
  - Anaemia [Not Recovered/Not Resolved]
  - Cheilitis [Recovering/Resolving]
  - Hepatic enzyme increased [Unknown]
  - Nausea [Not Recovered/Not Resolved]
  - Fatigue [Not Recovered/Not Resolved]
  - Decreased appetite [Unknown]

NARRATIVE: CASE EVENT DATE: 2019
